FAERS Safety Report 12212676 (Version 3)
Quarter: 2016Q4

REPORT INFORMATION
  Report Type: Spontaneous
  Country: FR (occurrence: FR)
  Receive Date: 20160328
  Receipt Date: 20161207
  Transmission Date: 20170207
  Serious: Yes (Life-Threatening, Other)
  Sender: FDA-Public Use
  Company Number: FR-009507513-1603FRA011653

PATIENT
  Age: 52 Year
  Sex: Female

DRUGS (3)
  1. NOXAFIL [Suspect]
     Active Substance: POSACONAZOLE
     Indication: OESOPHAGEAL CANDIDIASIS
  2. NOXAFIL [Suspect]
     Active Substance: POSACONAZOLE
     Indication: MUCOSAL INFLAMMATION
  3. NOXAFIL [Suspect]
     Active Substance: POSACONAZOLE
     Indication: ORAL CANDIDIASIS
     Dosage: 300 MG, TID
     Route: 048
     Dates: start: 20160215, end: 201603

REACTIONS (2)
  - Product use issue [Unknown]
  - Pancreatitis acute [Recovered/Resolved]

NARRATIVE: CASE EVENT DATE: 20160215
